FAERS Safety Report 11732652 (Version 1)
Quarter: 2015Q4

REPORT INFORMATION
  Report Type: Spontaneous
  Country: US (occurrence: US)
  Receive Date: 20151113
  Receipt Date: 20151113
  Transmission Date: 20160304
  Serious: Yes (Hospitalization)
  Sender: FDA-Public Use
  Company Number: US-BEH-2015055498

PATIENT
  Sex: Female
  Weight: 85 kg

DRUGS (23)
  1. GLYBURIDE. [Concomitant]
     Active Substance: GLYBURIDE
  2. MULTIVITAMIN [Concomitant]
     Active Substance: VITAMINS
  3. LYRICA [Concomitant]
     Active Substance: PREGABALIN
  4. CALCIUM CITRATE [Concomitant]
     Active Substance: CALCIUM CITRATE
  5. DIPHENHYDRAMINE. [Concomitant]
     Active Substance: DIPHENHYDRAMINE
  6. EPIPEN [Concomitant]
     Active Substance: EPINEPHRINE
  7. KEFLEX [Concomitant]
     Active Substance: CEPHALEXIN
  8. HYDROCODONE BITARTRATE AND ACETAMINOPHEN [Concomitant]
     Active Substance: ACETAMINOPHEN\HYDROCODONE BITARTRATE
  9. ABILIFY [Concomitant]
     Active Substance: ARIPIPRAZOLE
  10. FLUOXETINE [Concomitant]
     Active Substance: FLUOXETINE HYDROCHLORIDE
  11. LORAZEPAM. [Concomitant]
     Active Substance: LORAZEPAM
  12. LANSOPRAZOLE. [Concomitant]
     Active Substance: LANSOPRAZOLE
  13. VITAMIN D [Concomitant]
     Active Substance: CHOLECALCIFEROL
  14. METOPROLOL [Concomitant]
     Active Substance: METOPROLOL
  15. PREDNISONE. [Concomitant]
     Active Substance: PREDNISONE
  16. IRON [Concomitant]
     Active Substance: IRON
  17. VITAMIN D3 [Concomitant]
     Active Substance: CHOLECALCIFEROL
  18. HIZENTRA [Suspect]
     Active Substance: HUMAN IMMUNOGLOBULIN G
     Indication: HYPOGAMMAGLOBULINAEMIA
     Route: 058
  19. TUMS [Concomitant]
     Active Substance: CALCIUM CARBONATE
  20. CALCITRIOL. [Concomitant]
     Active Substance: CALCITRIOL
  21. ACETAMINOPHEN. [Concomitant]
     Active Substance: ACETAMINOPHEN
  22. LIDOCAINE. [Concomitant]
     Active Substance: LIDOCAINE
  23. SODIUM BICARB [Concomitant]

REACTIONS (1)
  - Unevaluable event [Unknown]
